FAERS Safety Report 22139352 (Version 1)
Quarter: 2023Q1

REPORT INFORMATION
  Report Type: Spontaneous
  Country: US (occurrence: US)
  Receive Date: 20230327
  Receipt Date: 20230327
  Transmission Date: 20230417
  Serious: Yes (Hospitalization)
  Sender: FDA-Public Use
  Company Number: US-Vifor (International) Inc.-VIT-2023-02125

PATIENT
  Age: 68 Year
  Sex: Female
  Weight: 111 kg

DRUGS (4)
  1. MIRCERA [Suspect]
     Active Substance: METHOXY POLYETHYLENE GLYCOL-EPOETIN BETA
     Indication: Anaemia
     Dosage: 1ST DOSE OF MIRCERA
     Route: 042
     Dates: start: 20221213, end: 20221213
  2. VENOFER [Suspect]
     Active Substance: IRON SUCROSE
     Indication: Product used for unknown indication
     Route: 042
     Dates: start: 20221213
  3. CALCITRIOL [Concomitant]
     Active Substance: CALCITRIOL
     Dates: start: 20221213
  4. CINACALCET [Concomitant]
     Active Substance: CINACALCET
     Dates: start: 20221213

REACTIONS (4)
  - Drug hypersensitivity [Recovered/Resolved]
  - Dizziness [Recovered/Resolved]
  - Feeling hot [Recovered/Resolved]
  - Confusional state [Recovered/Resolved]

NARRATIVE: CASE EVENT DATE: 20221213
